FAERS Safety Report 5109826-2 (Version None)
Quarter: 2006Q3

REPORT INFORMATION
  Report Type: 
  Country: None (occurrence: None)
  Receive Date: 20060918
  Receipt Date: 20060918
  Transmission Date: 20061208
  Serious: No
  Sender: FDA-Public Use
  Company Number: None

PATIENT
  Age: 68 Year
  Sex: Female
  Weight: 78.4 kg

DRUGS (2)
  1. AMIFOSTINE [Suspect]
     Indication: PROPHYLAXIS
     Dosage: 500 MG ONCE SQ
     Route: 058
     Dates: start: 20060906, end: 20060906
  2. AMIFOSTINE [Suspect]
     Indication: RADIATION MUCOSITIS
     Dosage: 500 MG ONCE SQ
     Route: 058
     Dates: start: 20060906, end: 20060906

REACTIONS (8)
  - BODY TEMPERATURE INCREASED [None]
  - CONTUSION [None]
  - ERYTHEMA [None]
  - INDURATION [None]
  - INJECTION SITE PAIN [None]
  - SKIN DISCOLOURATION [None]
  - SWELLING [None]
  - WHITE BLOOD CELL COUNT DECREASED [None]
